FAERS Safety Report 9183202 (Version 1)
Quarter: 2013Q1

REPORT INFORMATION
  Report Type: Spontaneous
  Country: US (occurrence: US)
  Receive Date: 20130322
  Receipt Date: 20130322
  Transmission Date: 20140127
  Serious: No
  Sender: FDA-Public Use
  Company Number: US-BRISTOL-MYERS SQUIBB COMPANY-17034257

PATIENT
  Age: 78 Year
  Sex: Female

DRUGS (3)
  1. ERBITUX [Suspect]
     Route: 042
     Dates: start: 2011
  2. CAMPTOSAR [Concomitant]
  3. 5-FLUOROURACIL [Concomitant]

REACTIONS (2)
  - Pain in extremity [Not Recovered/Not Resolved]
  - Nail bed bleeding [Not Recovered/Not Resolved]
